FAERS Safety Report 12300129 (Version 1)
Quarter: 2016Q2

REPORT INFORMATION
  Report Type: Report from Study
  Country: CA (occurrence: CA)
  Receive Date: 20160425
  Receipt Date: 20160425
  Transmission Date: 20160815
  Serious: Yes (Other)
  Sender: FDA-Public Use
  Company Number: CA-CELGENEUS-CAN-2016026022

PATIENT
  Age: 67 Year
  Sex: Male
  Weight: 81.8 kg

DRUGS (25)
  1. BUSULFAN. [Suspect]
     Active Substance: BUSULFAN
     Indication: PLASMA CELL MYELOMA
     Route: 041
     Dates: start: 20150624, end: 20150626
  2. MELPHALAN [Suspect]
     Active Substance: MELPHALAN
     Indication: PLASMA CELL MYELOMA
     Dosage: 240 MILLIGRAM
     Route: 041
     Dates: start: 20150627, end: 20150627
  3. VITAMIN D [Concomitant]
     Active Substance: CHOLECALCIFEROL
     Route: 048
     Dates: start: 20150729
  4. PANTOPRAZOLE [Concomitant]
     Active Substance: PANTOPRAZOLE SODIUM
     Indication: DYSPEPSIA
     Dosage: 200 MILLIGRAM
     Route: 048
     Dates: start: 20150706
  5. SENNA [Concomitant]
     Active Substance: SENNA LEAF\SENNOSIDES\SENNOSIDES A AND B
     Indication: CONSTIPATION PROPHYLAXIS
     Dosage: 2 TABLET
     Route: 048
     Dates: start: 20150713
  6. SERTRALINE [Concomitant]
     Active Substance: SERTRALINE HYDROCHLORIDE
     Indication: DEPRESSION
     Route: 048
     Dates: start: 2000
  7. VALACYCLOVIR [Concomitant]
     Active Substance: VALACYCLOVIR HYDROCHLORIDE
     Indication: ANTIVIRAL PROPHYLAXIS
     Dosage: 4 MILLIGRAM
     Route: 048
     Dates: start: 20150130
  8. ARTHROTEC [Concomitant]
     Active Substance: DICLOFENAC SODIUM\MISOPROSTOL
     Indication: ARTHRITIS
     Dosage: 500 MILLIGRAM
     Route: 048
     Dates: start: 20150729
  9. VITAMIN D [Concomitant]
     Active Substance: CHOLECALCIFEROL
     Indication: ROUTINE HEALTH MAINTENANCE
     Route: 048
     Dates: start: 2000
  10. FLUCONAZOLE. [Concomitant]
     Active Substance: FLUCONAZOLE
     Indication: PROPHYLAXIS
     Route: 048
     Dates: start: 20150630
  11. CALCIUM CITRATE [Concomitant]
     Active Substance: CALCIUM CITRATE
     Indication: HYPOCALCAEMIA
     Dosage: 5 MILLIGRAM
     Route: 048
     Dates: start: 20150710
  12. MAGNESIUM [Concomitant]
     Active Substance: MAGNESIUM
     Dosage: 1000 MILLIGRAM
     Route: 048
     Dates: start: 20150729
  13. REVLIMID [Suspect]
     Active Substance: LENALIDOMIDE
     Indication: PLASMA CELL MYELOMA
     Route: 048
     Dates: start: 20151007, end: 20151230
  14. MAGNESIUM [Concomitant]
     Active Substance: MAGNESIUM
     Indication: ROUTINE HEALTH MAINTENANCE
     Route: 048
     Dates: start: 2000
  15. FOLIC ACID. [Concomitant]
     Active Substance: FOLIC ACID
     Indication: BLOOD COUNT ABNORMAL
     Dosage: 40 MILLIGRAM
     Route: 048
     Dates: start: 20150709
  16. TAMSULOSIN HCL [Concomitant]
     Active Substance: TAMSULOSIN
     Indication: PROSTATOMEGALY
     Dosage: 25 MILLIGRAM
     Route: 048
     Dates: start: 2004
  17. ZOMETA [Concomitant]
     Active Substance: ZOLEDRONIC ACID
     Indication: PROPHYLAXIS
     Dosage: .4 MILLIGRAM
     Route: 041
     Dates: start: 20150129
  18. ARTHROTEC [Concomitant]
     Active Substance: DICLOFENAC SODIUM\MISOPROSTOL
     Indication: ARTHRALGIA
  19. MULTIVITAMINS [Concomitant]
     Active Substance: VITAMINS
     Dosage: 81 MILLIGRAM
     Route: 048
     Dates: start: 20150729
  20. CIPROFLOXACIN. [Concomitant]
     Active Substance: CIPROFLOXACIN
     Indication: INFECTION PROPHYLAXIS
     Route: 048
     Dates: start: 20160210, end: 20160215
  21. REVLIMID [Suspect]
     Active Substance: LENALIDOMIDE
     Dosage: 250 MILLIGRAM
     Route: 048
     Dates: start: 20151231
  22. TYLENOL EXTRA STRENGTH [Concomitant]
     Active Substance: ACETAMINOPHEN
     Indication: BACK PAIN
     Route: 048
     Dates: start: 1995
  23. TYLENOL EXTRA STRENGTH [Concomitant]
     Active Substance: ACETAMINOPHEN
     Indication: PYREXIA
     Dosage: 600 MILLIGRAM
     Route: 048
     Dates: start: 20150711
  24. MULTIVITAMINS [Concomitant]
     Active Substance: VITAMINS
     Indication: ROUTINE HEALTH MAINTENANCE
     Dosage: 50 MILLIGRAM
     Route: 048
     Dates: start: 2000
  25. ASA [Concomitant]
     Active Substance: ASPIRIN
     Indication: THROMBOSIS PROPHYLAXIS
     Route: 048
     Dates: start: 20151105

REACTIONS (1)
  - Prostate cancer [Not Recovered/Not Resolved]

NARRATIVE: CASE EVENT DATE: 20160211
